FAERS Safety Report 22616215 (Version 1)
Quarter: 2023Q2

REPORT INFORMATION
  Report Type: Spontaneous
  Country: IT (occurrence: IT)
  Receive Date: 20230619
  Receipt Date: 20230619
  Transmission Date: 20230722
  Serious: Yes (Death, Other)
  Sender: FDA-Public Use
  Company Number: IT-Calliditas-2023CAL00771

PATIENT

DRUGS (1)
  1. BUDESONIDE [Suspect]
     Active Substance: BUDESONIDE
     Indication: Bronchopulmonary dysplasia
     Route: 039

REACTIONS (4)
  - Death [Fatal]
  - Hospitalisation [Unknown]
  - Patent ductus arteriosus [Unknown]
  - Mechanical ventilation [Unknown]
